FAERS Safety Report 22588879 (Version 1)
Quarter: 2023Q2

REPORT INFORMATION
  Report Type: Spontaneous
  Country: US (occurrence: US)
  Receive Date: 20230612
  Receipt Date: 20230612
  Transmission Date: 20230721
  Serious: Yes (Death)
  Sender: FDA-Public Use
  Company Number: US-AMNEAL PHARMACEUTICALS-2023-AMRX-01976

PATIENT
  Sex: Male
  Weight: 88.435 kg

DRUGS (6)
  1. RYTARY [Suspect]
     Active Substance: CARBIDOPA\LEVODOPA
     Indication: Product used for unknown indication
     Dosage: 3 CAPSULES, QID (36.25/145 MG), 5 HOURS APART
     Route: 048
  2. RYTARY [Suspect]
     Active Substance: CARBIDOPA\LEVODOPA
     Dosage: 3 CAPSULES, QID (48.75-195 MG)
     Route: 048
     Dates: start: 2020, end: 202305
  3. RIVASTIGMINE [Concomitant]
     Active Substance: RIVASTIGMINE
     Indication: Product used for unknown indication
     Dosage: 95 MILLIGRAM APPLIED FOR 24 HR.
     Route: 065
  4. LORAZEPAM [Concomitant]
     Active Substance: LORAZEPAM
     Indication: Insomnia
     Dosage: 1 GRAM, BID
     Route: 065
  5. WARFARIN [Concomitant]
     Active Substance: WARFARIN
     Indication: Thrombosis
     Dosage: 1 GRAM
     Route: 065
  6. ZOLAX [ALPRAZOLAM] [Concomitant]
     Indication: Depression
     Dosage: 100 MILLIGRAM, QD
     Route: 065

REACTIONS (1)
  - Parkinson^s disease [Fatal]
